FAERS Safety Report 14992636 (Version 1)
Quarter: 2018Q2

REPORT INFORMATION
  Report Type: Spontaneous
  Country: DE (occurrence: DE)
  Receive Date: 20180609
  Receipt Date: 20180609
  Transmission Date: 20180711
  Serious: Yes (Life-Threatening, Hospitalization, Other)
  Sender: FDA-Public Use
  Company Number: DE-AUROBINDO-AUR-APL-2017-39058

PATIENT
  Age: 58 Year
  Sex: Female

DRUGS (4)
  1. METOPROLOL. [Concomitant]
     Active Substance: METOPROLOL
     Indication: HEART RATE ABNORMAL
     Route: 065
     Dates: start: 2014
  2. AMIODARONE 200MG [Suspect]
     Active Substance: AMIODARONE
     Dosage: 200 MG, MAINTENANCE DOSE
     Route: 048
     Dates: start: 201408, end: 20140828
  3. AMIODARONE 200MG [Suspect]
     Active Substance: AMIODARONE
     Indication: ATRIAL FIBRILLATION
     Dosage: , LOADING DOSE200 MG, 3 TIMES A DAY
     Route: 048
     Dates: start: 20140822, end: 201408
  4. DIGITOXIN [Concomitant]
     Active Substance: DIGITOXIN
     Indication: PRODUCT USED FOR UNKNOWN INDICATION
     Dosage: UNK
     Route: 065
     Dates: start: 20141101

REACTIONS (8)
  - Acute respiratory failure [Recovered/Resolved]
  - Leukocytosis [Unknown]
  - Pulmonary toxicity [Recovered/Resolved]
  - Atelectasis [Recovered/Resolved]
  - Acute respiratory distress syndrome [Recovered/Resolved]
  - Dyspnoea exertional [Recovered/Resolved]
  - Lymphadenopathy [Recovered/Resolved]
  - Pleural effusion [Recovered/Resolved]
